FAERS Safety Report 6385104-9 (Version None)
Quarter: 2009Q4

REPORT INFORMATION
  Report Type: 
  Country: None (occurrence: None)
  Receive Date: 20091002
  Receipt Date: 20090925
  Transmission Date: 20100525
  Serious: Yes (Death, Hospitalization)
  Sender: FDA-Public Use
  Company Number: HU-AVENTIS-200813684GDDC

PATIENT
  Age: 75 Year
  Sex: Male
  Weight: 82.5 kg

DRUGS (10)
  1. AFLIBERCEPT [Suspect]
     Route: 042
     Dates: start: 20080402, end: 20080402
  2. DOCETAXEL [Suspect]
     Route: 042
     Dates: start: 20080402, end: 20080402
  3. PREDNISONE [Suspect]
     Route: 048
     Dates: start: 20080312, end: 20080514
  4. METHYLPREDNISOLONE 4MG TAB [Concomitant]
  5. FAMOTIDINE [Concomitant]
  6. METOPROLOL [Concomitant]
     Dosage: DOSE: 2 X1
  7. METOPROLOL TARTRATE [Concomitant]
     Dosage: DOSE: UNK
  8. AMILORIDE HYDROCHLORIDE [Concomitant]
  9. HYDROCHLOROTHIAZIDE [Concomitant]
  10. ALLOPURINOL [Concomitant]
     Dates: start: 19800101

REACTIONS (2)
  - CARDIAC FAILURE [None]
  - CHEST PAIN [None]
